FAERS Safety Report 16588967 (Version 1)
Quarter: 2019Q3

REPORT INFORMATION
  Report Type: Spontaneous
  Country: US (occurrence: US)
  Receive Date: 20190718
  Receipt Date: 20190718
  Transmission Date: 20191004
  Serious: Yes (Other)
  Sender: FDA-Public Use
  Company Number: PHEH2019US029098

PATIENT
  Age: 64 Year
  Sex: Female
  Weight: 49 kg

DRUGS (1)
  1. KYMRIAH [Suspect]
     Active Substance: TISAGENLECLEUCEL
     Indication: DIFFUSE LARGE B-CELL LYMPHOMA
     Dosage: UNK
     Route: 065
     Dates: start: 20190521

REACTIONS (12)
  - Hypotension [Unknown]
  - Aphasia [Unknown]
  - Neurotoxicity [Unknown]
  - Somnolence [Unknown]
  - Cytokine release syndrome [Unknown]
  - Pyrexia [Unknown]
  - Chills [Unknown]
  - Hemiparesis [Unknown]
  - Memory impairment [Unknown]
  - Fatigue [Unknown]
  - Encephalopathy [Unknown]
  - Tachycardia [Unknown]

NARRATIVE: CASE EVENT DATE: 20190522
